FAERS Safety Report 21144562 (Version 1)
Quarter: 2022Q3

REPORT INFORMATION
  Report Type: Spontaneous
  Country: FR (occurrence: FR)
  Receive Date: 20220728
  Receipt Date: 20220728
  Transmission Date: 20221026
  Serious: Yes (Other)
  Sender: FDA-Public Use
  Company Number: None

PATIENT
  Age: 60 Year
  Sex: Female
  Weight: 70 kg

DRUGS (1)
  1. TAHOR [Suspect]
     Active Substance: ATORVASTATIN CALCIUM
     Indication: Vascular disorder prophylaxis
     Dosage: 10 MG, ALTERNATE DAY
     Route: 048
     Dates: start: 20211005, end: 20211025

REACTIONS (1)
  - Linear IgA disease [Recovered/Resolved]

NARRATIVE: CASE EVENT DATE: 20211025
